FAERS Safety Report 19107654 (Version 1)
Quarter: 2021Q2

REPORT INFORMATION
  Report Type: Spontaneous
  Country: US (occurrence: US)
  Receive Date: 20210408
  Receipt Date: 20210408
  Transmission Date: 20210717
  Serious: Yes (Other)
  Sender: FDA-Public Use
  Company Number: None

PATIENT
  Age: 42 Year
  Sex: Male

DRUGS (1)
  1. DUPIXENT [Suspect]
     Active Substance: DUPILUMAB
     Indication: DERMATITIS
     Dosage: ?          OTHER FREQUENCY:Q 14 DAYS;?
     Route: 058
     Dates: start: 20200925

REACTIONS (1)
  - Conjunctivitis [None]

NARRATIVE: CASE EVENT DATE: 20210301
